FAERS Safety Report 10068440 (Version 6)
Quarter: 2015Q2

REPORT INFORMATION
  Report Type: Report from Study
  Country: US (occurrence: US)
  Receive Date: 20140409
  Receipt Date: 20150625
  Transmission Date: 20150821
  Serious: Yes (Hospitalization)
  Sender: FDA-Public Use
  Company Number: US-ACTELION-A-US2014-96863

PATIENT
  Age: 64 Year
  Sex: Female

DRUGS (5)
  1. VELETRI [Suspect]
     Active Substance: EPOPROSTENOL
     Indication: PULMONARY ARTERIAL HYPERTENSION
     Dosage: 5 NG/KG, PER MIN
     Route: 042
     Dates: start: 20140312
  2. REVATIO [Concomitant]
     Active Substance: SILDENAFIL CITRATE
     Dosage: 20 MG, TID
     Dates: start: 20100407
  3. VELETRI [Suspect]
     Active Substance: EPOPROSTENOL
     Dosage: 23.7 NG/KG, PER MIN
     Route: 042
  4. VELETRI [Suspect]
     Active Substance: EPOPROSTENOL
     Dosage: 7.2 NG/KG, PER MIN
     Route: 042
     Dates: start: 20140315
  5. LETAIRIS [Concomitant]
     Active Substance: AMBRISENTAN

REACTIONS (16)
  - Blood creatinine increased [Unknown]
  - Oedema [Unknown]
  - Nausea [Recovered/Resolved]
  - Headache [Unknown]
  - Palpitations [Unknown]
  - Flushing [Unknown]
  - Influenza like illness [Unknown]
  - Chest pain [Unknown]
  - Rash generalised [Unknown]
  - Weight increased [Unknown]
  - Oedema peripheral [Unknown]
  - Diarrhoea [Unknown]
  - Feeling abnormal [Unknown]
  - Pain in jaw [Unknown]
  - Pain in extremity [Unknown]
  - Eructation [Unknown]
